FAERS Safety Report 10734043 (Version 1)
Quarter: 2015Q1

REPORT INFORMATION
  Report Type: Spontaneous
  Country: US (occurrence: US)
  Receive Date: 20150123
  Receipt Date: 20150123
  Transmission Date: 20150721
  Serious: Yes (Death, Other)
  Sender: FDA-Public Use
  Company Number: US-GLAXOSMITHKLINE-US2015GSK009180

PATIENT
  Age: 62 Year
  Sex: Female
  Weight: 132.43 kg

DRUGS (2)
  1. VOTRIENT [Suspect]
     Active Substance: PAZOPANIB HYDROCHLORIDE
     Indication: SARCOMA
     Dosage: 800 MG, QD
     Route: 048
     Dates: start: 201407
  2. FONDAPARINUX [Concomitant]
     Active Substance: FONDAPARINUX

REACTIONS (1)
  - Death [Fatal]

NARRATIVE: CASE EVENT DATE: 20150114
